FAERS Safety Report 13711436 (Version 1)
Quarter: 2017Q3

REPORT INFORMATION
  Report Type: Spontaneous
  Country: US (occurrence: US)
  Receive Date: 20170701
  Receipt Date: 20170701
  Transmission Date: 20171127
  Serious: Yes (Disabling)
  Sender: FDA-Public Use
  Company Number: None

PATIENT
  Age: 72 Year
  Sex: Female
  Weight: 67.5 kg

DRUGS (8)
  1. DOXYCYCLINE HYC 100MG 2X DAY 7 D [Suspect]
     Active Substance: DOXYCYCLINE HYCLATE
     Indication: INFECTION PROPHYLAXIS
     Dosage: ?          OTHER STRENGTH:MG;QUANTITY:1 CAPSULE(S);?
     Route: 048
     Dates: start: 20170517, end: 20170524
  2. SYNTHROID [Concomitant]
     Active Substance: LEVOTHYROXINE SODIUM
  3. MTHFER-F METHYLFOLATE SUPPLEMENT [Concomitant]
  4. MINERAL SUPPLEMENTS [Concomitant]
     Active Substance: MINERALS
  5. CALCIUM [Concomitant]
     Active Substance: CALCIUM
  6. MAG [Concomitant]
  7. FISH OIL [Concomitant]
     Active Substance: FISH OIL
  8. MULTI-VITAMIN [Concomitant]
     Active Substance: .ALPHA.-TOCOPHEROL ACETATE, DL-\ASCORBIC ACID\CYANOCOBALAMIN\FLUORIDE ION\FOLIC ACID\NIACIN\PYRIDOXINE\RIBOFLAVIN\THIAMINE\VITAMIN A\VITAMIN D

REACTIONS (30)
  - Aphasia [None]
  - Cognitive disorder [None]
  - Disturbance in attention [None]
  - Formication [None]
  - Impaired driving ability [None]
  - Arthritis [None]
  - Anxiety [None]
  - Vision blurred [None]
  - Dizziness [None]
  - Paraesthesia [None]
  - Burning sensation [None]
  - Musculoskeletal stiffness [None]
  - Influenza [None]
  - Pain in extremity [None]
  - Headache [None]
  - Confusional state [None]
  - Chest discomfort [None]
  - Pain [None]
  - Chills [None]
  - Tendon disorder [None]
  - Gait disturbance [None]
  - Balance disorder [None]
  - Fear [None]
  - Dyskinesia [None]
  - Grip strength decreased [None]
  - Arthralgia [None]
  - Eye irritation [None]
  - Asthenia [None]
  - Exercise tolerance decreased [None]
  - Screaming [None]

NARRATIVE: CASE EVENT DATE: 20170524
